FAERS Safety Report 14929929 (Version 1)
Quarter: 2018Q2

REPORT INFORMATION
  Report Type: Spontaneous
  Country: SE (occurrence: SE)
  Receive Date: 20180523
  Receipt Date: 20180523
  Transmission Date: 20180711
  Serious: Yes (Congenital Anomaly)
  Sender: FDA-Public Use
  Company Number: SE-MYLANLABS-2018M1033248

PATIENT

DRUGS (1)
  1. OXYBUTYNIN. [Suspect]
     Active Substance: OXYBUTYNIN CHLORIDE
     Indication: HYPERHIDROSIS
     Dosage: 2.5 MG, QD
     Route: 064
     Dates: start: 20171201, end: 20180122

REACTIONS (3)
  - Skull malformation [Unknown]
  - Foetal exposure during pregnancy [Unknown]
  - Congenital central nervous system anomaly [Unknown]
